FAERS Safety Report 11773993 (Version 1)
Quarter: 2015Q4

REPORT INFORMATION
  Report Type: Spontaneous
  Country: US (occurrence: US)
  Receive Date: 20151124
  Receipt Date: 20151124
  Transmission Date: 20160304
  Serious: No
  Sender: FDA-Public Use
  Company Number: US-PERNIX THERAPEUTICS-2015PT000175

PATIENT

DRUGS (18)
  1. ASPIRIN                            /00002701/ [Concomitant]
     Active Substance: ASPIRIN
     Indication: POLYCYTHAEMIA
     Dosage: 81 MG, DAILY
  2. RIVASTIGMINE. [Suspect]
     Active Substance: RIVASTIGMINE
     Indication: AMNESIA
     Dosage: 3 MG, TWICE DAILY
     Route: 048
     Dates: start: 2000
  3. BENADRYL [Suspect]
     Active Substance: DIPHENHYDRAMINE HYDROCHLORIDE
     Indication: PRURITUS
     Dosage: 50 MG, AS NEEDED
     Route: 048
  4. HYDREA [Suspect]
     Active Substance: HYDROXYUREA
     Indication: POLYCYTHAEMIA
     Dosage: 1000 MG, DAILY WITH AN ADDITIONAL 500 MG ON MONDAY AND FRIDAY
     Route: 048
     Dates: start: 2000
  5. HYDROCODONE BITARTRATE. [Suspect]
     Active Substance: HYDROCODONE BITARTRATE
     Indication: PAIN
     Dosage: 1 TO 2 TABLET, EVERY 6 HOURS
     Route: 048
     Dates: start: 2014, end: 2015
  6. OXYCODONE [Suspect]
     Active Substance: OXYCODONE
     Indication: PAIN
     Dosage: 1 TO 2 TABLETS, EVERY 6 HOURS
     Route: 048
     Dates: start: 201503, end: 2015
  7. ENALAPRIL [Concomitant]
     Active Substance: ENALAPRIL
     Indication: HYPERTENSION
     Dosage: 10 MG, DAILY
     Route: 048
  8. POTASSIUM CHLORIDE. [Concomitant]
     Active Substance: POTASSIUM CHLORIDE
     Indication: SUPPLEMENTATION THERAPY
     Dosage: 10 MEQ, DAILY
  9. EFFEXOR [Concomitant]
     Active Substance: VENLAFAXINE HYDROCHLORIDE
     Indication: DEPRESSION
     Dosage: 75 MG, TWICE DAILY
  10. LYRICA [Suspect]
     Active Substance: PREGABALIN
     Indication: FIBROMYALGIA
  11. METHIMAZOLE. [Concomitant]
     Active Substance: METHIMAZOLE
     Indication: THYROID DISORDER
     Dosage: 5 MG, DAILY
     Route: 048
  12. SAVELLA [Suspect]
     Active Substance: MILNACIPRAN HYDROCHLORIDE
     Indication: FIBROMYALGIA
     Dosage: 12.5 MG, TWICE DAILY
     Route: 048
     Dates: start: 201212, end: 20130603
  13. CYMBALTA [Suspect]
     Active Substance: DULOXETINE HYDROCHLORIDE
     Indication: FIBROMYALGIA
     Dosage: 60 MG, UNK
     Route: 048
     Dates: start: 2015, end: 2015
  14. DONEPEZIL. [Suspect]
     Active Substance: DONEPEZIL
     Indication: AMNESIA
     Dosage: 10 MG, DAILY
     Route: 048
     Dates: start: 2000
  15. HYDROCHLOROTHIAZIDE. [Suspect]
     Active Substance: HYDROCHLOROTHIAZIDE
     Indication: HYPERTENSION
     Dosage: 25 MG, DAILY
     Route: 048
  16. HYDROCHLOROTHIAZIDE. [Suspect]
     Active Substance: HYDROCHLOROTHIAZIDE
     Dosage: 25 MG, ON MONDAY, WEDNESDAY, FRIDAY
     Dates: start: 201502
  17. VITAMIN B12 [Concomitant]
     Active Substance: CYANOCOBALAMIN
     Indication: VITAMIN SUPPLEMENTATION
     Dosage: 1 TABLET, DAILY
     Route: 048
  18. LORAZEPAM. [Concomitant]
     Active Substance: LORAZEPAM
     Indication: ANXIETY
     Dosage: 0.5 MG, 3 TIMES DAILY PRN
     Route: 048

REACTIONS (1)
  - Drug ineffective [Unknown]
